FAERS Safety Report 24611351 (Version 1)
Quarter: 2024Q4

REPORT INFORMATION
  Report Type: Spontaneous
  Country: FR (occurrence: FR)
  Receive Date: 20241113
  Receipt Date: 20241113
  Transmission Date: 20250114
  Serious: Yes (Hospitalization, Other)
  Sender: CHEPLAPHARM
  Company Number: None

PATIENT
  Age: 82 Year
  Sex: Male
  Weight: 81 kg

DRUGS (4)
  1. HYDROXYUREA [Suspect]
     Active Substance: HYDROXYUREA
     Indication: Polycythaemia vera
     Route: 048
     Dates: start: 2005, end: 2019
  2. RUXOLITINIB [Suspect]
     Active Substance: RUXOLITINIB
     Indication: Polycythaemia vera
     Dosage: DAILY DOSE: 25 MILLIGRAM
     Route: 048
     Dates: start: 20201101
  3. ASPIRIN DL-LYSINE [Concomitant]
     Active Substance: ASPIRIN DL-LYSINE
  4. VERCYTE [Concomitant]
     Active Substance: PIPOBROMAN
     Dates: start: 202008

REACTIONS (3)
  - Basal cell carcinoma [Recovered/Resolved with Sequelae]
  - Squamous cell carcinoma of skin [Recovered/Resolved with Sequelae]
  - Dermatitis exfoliative generalised [Recovering/Resolving]

NARRATIVE: CASE EVENT DATE: 20190101
